FAERS Safety Report 25211746 (Version 2)
Quarter: 2025Q3

REPORT INFORMATION
  Report Type: Spontaneous
  Country: US (occurrence: US)
  Receive Date: 20250418
  Receipt Date: 20250803
  Transmission Date: 20251020
  Serious: Yes (Other)
  Sender: ALEXION PHARMACEUTICALS
  Company Number: US-AstraZeneca-CH-00847610A

PATIENT
  Sex: Female

DRUGS (1)
  1. LYNPARZA [Suspect]
     Active Substance: OLAPARIB
     Route: 065

REACTIONS (5)
  - Neoplasm malignant [Unknown]
  - Malignant neoplasm progression [Unknown]
  - Breast mass [Unknown]
  - Biopsy [Unknown]
  - Drug ineffective [Unknown]
